FAERS Safety Report 22186608 (Version 1)
Quarter: 2023Q2

REPORT INFORMATION
  Report Type: Spontaneous
  Country: AU (occurrence: AU)
  Receive Date: 20230407
  Receipt Date: 20230407
  Transmission Date: 20230722
  Serious: Yes (Hospitalization)
  Sender: FDA-Public Use
  Company Number: AU-BAXTER-2023BAX017224

PATIENT
  Age: 5 Year
  Sex: Female

DRUGS (18)
  1. CERNEVIT [Suspect]
     Active Substance: VITAMINS
     Indication: Parenteral nutrition
     Route: 065
  2. SYNTHAMIN [Suspect]
     Active Substance: AMINO ACIDS
     Indication: Parenteral nutrition
     Route: 065
  3. WATER FOR INJECTION [Suspect]
     Active Substance: WATER
     Indication: Parenteral nutrition
     Route: 065
  4. COPPER [Suspect]
     Active Substance: COPPER
     Indication: Parenteral nutrition
     Route: 065
  5. SELENIUM [Suspect]
     Active Substance: SELENIUM
     Indication: Parenteral nutrition
     Dosage: UNK
     Route: 065
  6. SMOFLIPID [Suspect]
     Active Substance: FISH OIL\MEDIUM-CHAIN TRIGLYCERIDES\OLIVE OIL\SOYBEAN OIL
     Indication: Parenteral nutrition
     Route: 065
  7. SODIUM IODIDE [Suspect]
     Active Substance: SODIUM IODIDE
     Indication: Parenteral nutrition
     Dosage: SODIUM IODIDE SYR
     Route: 065
  8. VITAMIN K [Suspect]
     Active Substance: PHYTONADIONE
     Indication: Parenteral nutrition
     Dosage: VITAMIN K DILUTED
     Route: 065
  9. CALCIUM GLUCONATE [Suspect]
     Active Substance: CALCIUM GLUCONATE
     Indication: Parenteral nutrition
     Route: 065
  10. MAGNESIUM SULFATE [Suspect]
     Active Substance: MAGNESIUM SULFATE
     Indication: Parenteral nutrition
     Route: 065
  11. POTASSIUM ACETATE [Suspect]
     Active Substance: POTASSIUM ACETATE
     Indication: Parenteral nutrition
     Route: 065
  12. POTASSIUM CHLORIDE [Suspect]
     Active Substance: POTASSIUM CHLORIDE
     Indication: Parenteral nutrition
     Route: 065
  13. POTASSIUM PHOSPHATE, MONOBASIC [Suspect]
     Active Substance: POTASSIUM PHOSPHATE, MONOBASIC
     Indication: Parenteral nutrition
     Route: 065
  14. SODIUM ACETATE [Suspect]
     Active Substance: SODIUM ACETATE
     Indication: Parenteral nutrition
     Route: 065
  15. SODIUM CHLORIDE [Suspect]
     Active Substance: SODIUM CHLORIDE
     Indication: Parenteral nutrition
     Route: 065
  16. DEXTROSE [Suspect]
     Active Substance: DEXTROSE\DEXTROSE MONOHYDRATE
     Indication: Parenteral nutrition
     Route: 065
  17. WATER FOR INJECTION [Suspect]
     Active Substance: WATER
     Indication: Parenteral nutrition
     Route: 065
  18. ZINC [Suspect]
     Active Substance: ZINC
     Indication: Parenteral nutrition
     Route: 065

REACTIONS (4)
  - Malaise [Unknown]
  - Product temperature excursion issue [Unknown]
  - Product supply issue [Unknown]
  - Intentional product misuse to child [Unknown]

NARRATIVE: CASE EVENT DATE: 20230330
